FAERS Safety Report 7004906-9 (Version None)
Quarter: 2010Q3

REPORT INFORMATION
  Report Type: 
  Country: None (occurrence: None)
  Receive Date: 20100917
  Receipt Date: 20100903
  Transmission Date: 20110219
  Serious: Yes (Other)
  Sender: FDA-Public Use
  Company Number: 2010AP001850

PATIENT
  Age: 67 Year
  Sex: Female

DRUGS (6)
  1. ALENDRONATE SODIUM [Suspect]
     Dosage: 70 MG; QW PO, 70 MG; TAB; PO; QW
     Route: 048
  2. MYCOPHENOLATE MOFETIL [Suspect]
     Dosage: 2500 MG; QD, 500 MG; TAB; QD, 2500 MG; TAB; QD
     Dates: start: 20080101
  3. PREDNISOLONE [Suspect]
     Dosage: PO
     Route: 048
  4. AMITRIPTYLINE HYDROCHLORIDE [Concomitant]
  5. GABAPENTIN [Concomitant]
  6. CELLCEPT (NO PREF. NAME) [Concomitant]

REACTIONS (1)
  - OESOPHAGITIS [None]
